FAERS Safety Report 12913414 (Version 1)
Quarter: 2016Q4

REPORT INFORMATION
  Report Type: Report from Study
  Country: US (occurrence: US)
  Receive Date: 20161104
  Receipt Date: 20161104
  Transmission Date: 20170207
  Serious: Yes (Death)
  Sender: FDA-Public Use
  Company Number: US-ACTELION-A-US2016-145005

PATIENT
  Age: 66 Year
  Sex: Male

DRUGS (8)
  1. PLAQUENIL [Concomitant]
     Active Substance: HYDROXYCHLOROQUINE SULFATE
  2. MIRTAZAPINE. [Concomitant]
     Active Substance: MIRTAZAPINE
  3. OPSUMIT [Suspect]
     Active Substance: MACITENTAN
     Indication: PULMONARY ARTERIAL HYPERTENSION
     Dosage: 10 MG, QD
     Route: 048
     Dates: start: 20160120, end: 20161027
  4. PREDNISONE. [Concomitant]
     Active Substance: PREDNISONE
  5. FUROSEMIDE. [Concomitant]
     Active Substance: FUROSEMIDE
  6. REVATIO [Concomitant]
     Active Substance: SILDENAFIL CITRATE
  7. TAMSULOSIN [Concomitant]
     Active Substance: TAMSULOSIN
  8. CARVEDILOL. [Concomitant]
     Active Substance: CARVEDILOL

REACTIONS (1)
  - Death [Fatal]

NARRATIVE: CASE EVENT DATE: 20161027
